FAERS Safety Report 17483055 (Version 1)
Quarter: 2020Q1

REPORT INFORMATION
  Report Type: Spontaneous
  Country: US (occurrence: US)
  Receive Date: 20200302
  Receipt Date: 20200302
  Transmission Date: 20200409
  Serious: No
  Sender: FDA-Public Use
  Company Number: US-PFIZER INC-2020090824

PATIENT
  Age: 49 Year
  Sex: Male
  Weight: 83.9 kg

DRUGS (2)
  1. XELJANZ [Suspect]
     Active Substance: TOFACITINIB CITRATE
     Indication: ANKYLOSING SPONDYLITIS
     Dosage: 5 MG, 2X/DAY
     Route: 048
     Dates: start: 20200107
  2. XELJANZ [Suspect]
     Active Substance: TOFACITINIB CITRATE
     Indication: SACROILIITIS

REACTIONS (2)
  - Malaise [Unknown]
  - Infection [Unknown]
